FAERS Safety Report 10021220 (Version 1)
Quarter: 2014Q1

REPORT INFORMATION
  Report Type: Spontaneous
  Country: US (occurrence: None)
  Receive Date: 20140318
  Receipt Date: 20140318
  Transmission Date: 20141002
  Serious: Yes (Life-Threatening, Hospitalization)
  Sender: FDA-Public Use
  Company Number: None

PATIENT
  Age: 15 Year
  Sex: Female
  Weight: 63.5 kg

DRUGS (1)
  1. REMICADE [Suspect]
     Indication: JUVENILE IDIOPATHIC ARTHRITIS
     Dosage: 1X/ 6WKS
     Route: 042
     Dates: start: 20140306, end: 20140306

REACTIONS (4)
  - Chest pain [None]
  - Throat tightness [None]
  - Depressed mood [None]
  - Gait disturbance [None]
